FAERS Safety Report 5787875-9 (Version None)
Quarter: 2008Q2

REPORT INFORMATION
  Report Type: 
  Country: None (occurrence: None)
  Receive Date: 20080625
  Receipt Date: 20080613
  Transmission Date: 20081010
  Serious: Yes (Other)
  Sender: FDA-Public Use
  Company Number: AU-ROCHE-562109

PATIENT
  Sex: Male
  Weight: 91 kg

DRUGS (1)
  1. PEGASYS [Suspect]
     Dosage: WEEKLY.
     Route: 058
     Dates: start: 20070518, end: 20080418

REACTIONS (1)
  - ABORTION SPONTANEOUS [None]
